FAERS Safety Report 6935238-2 (Version None)
Quarter: 2010Q3

REPORT INFORMATION
  Report Type: 
  Country: None (occurrence: None)
  Receive Date: 20100822
  Receipt Date: 20100607
  Transmission Date: 20110219
  Serious: No
  Sender: FDA-Public Use
  Company Number: US-ALLERGAN-1007433US

PATIENT
  Age: 51 Year
  Sex: Female

DRUGS (2)
  1. COMBIGAN [Suspect]
     Indication: INTRAOCULAR PRESSURE INCREASED
     Dosage: 1 GTT, SINGLE
     Dates: start: 20100524
  2. SKELAXIN [Concomitant]

REACTIONS (4)
  - BLOOD PRESSURE DECREASED [None]
  - EYE IRRITATION [None]
  - EYE PAIN [None]
  - HEADACHE [None]
